FAERS Safety Report 24322634 (Version 3)
Quarter: 2024Q4

REPORT INFORMATION
  Report Type: Spontaneous
  Country: US (occurrence: US)
  Receive Date: 20240916
  Receipt Date: 20241009
  Transmission Date: 20250115
  Serious: Yes (Other)
  Sender: RECKITT BENCKISER
  Company Number: US-PROD-AS2-212756134-20-24-USA-RB-0007166

PATIENT
  Age: 54 Year
  Sex: Female

DRUGS (1)
  1. BIOFREEZE ROLL-ON [Suspect]
     Active Substance: MENTHOL
     Indication: Arthralgia
     Route: 065
     Dates: start: 20240907, end: 20240907

REACTIONS (6)
  - Burns third degree [Recovering/Resolving]
  - Thermal burn [Recovering/Resolving]
  - Skin exfoliation [Recovering/Resolving]
  - Blister [Recovering/Resolving]
  - Skin injury [Recovering/Resolving]
  - Erythema [Recovering/Resolving]

NARRATIVE: CASE EVENT DATE: 20240907
